FAERS Safety Report 4844588-5 (Version None)
Quarter: 2005Q4

REPORT INFORMATION
  Report Type: 
  Country: None (occurrence: None)
  Receive Date: 20051125
  Receipt Date: 20051114
  Transmission Date: 20060501
  Serious: Yes (Other)
  Sender: FDA-Public Use
  Company Number: 2005156131

PATIENT
  Age: 87 Year
  Sex: Female

DRUGS (1)
  1. MACUGEN [Suspect]
     Indication: ILL-DEFINED DISORDER
     Dosage: INTRAVITREOUS
     Dates: start: 20050101

REACTIONS (4)
  - COLONIC POLYP [None]
  - DRUG INEFFECTIVE [None]
  - HAEMATOCHEZIA [None]
  - MEMORY IMPAIRMENT [None]
